FAERS Safety Report 13743313 (Version 3)
Quarter: 2017Q3

REPORT INFORMATION
  Report Type: Spontaneous
  Country: US (occurrence: US)
  Receive Date: 20170711
  Receipt Date: 20170915
  Transmission Date: 20171127
  Serious: Yes (Other)
  Sender: FDA-Public Use
  Company Number: US-009507513-1706USA007394

PATIENT
  Age: 24 Year
  Sex: Female
  Weight: 95.23 kg

DRUGS (1)
  1. NEXPLANON [Suspect]
     Active Substance: ETONOGESTREL
     Indication: CONTRACEPTION
     Dosage: 1 ROD/3 YEARS
     Route: 059
     Dates: start: 2016, end: 20170629

REACTIONS (6)
  - Weight increased [Recovered/Resolved]
  - Difficulty removing drug implant [Recovered/Resolved]
  - Surgery [Recovered/Resolved]
  - Device deployment issue [Recovered/Resolved]
  - Acne [Recovered/Resolved]
  - Complication associated with device [Recovered/Resolved]

NARRATIVE: CASE EVENT DATE: 2016
